FAERS Safety Report 5674325-6 (Version None)
Quarter: 2008Q2

REPORT INFORMATION
  Report Type: 
  Country: None (occurrence: None)
  Receive Date: 20080227
  Receipt Date: 20071113
  Transmission Date: 20081010
  Serious: Yes (Other)
  Sender: FDA-Public Use
  Company Number: 2007S1011808

PATIENT
  Age: 58 Year
  Sex: Male

DRUGS (2)
  1. PRAVASTATIN [Suspect]
     Indication: HYPERCHOLESTEROLAEMIA
     Dosage: 40 MG;DAILY ; 20 MG;DAILY
  2. ATENOLOL [Concomitant]

REACTIONS (2)
  - LUPUS-LIKE SYNDROME [None]
  - MYALGIA [None]
